FAERS Safety Report 18806263 (Version 2)
Quarter: 2021Q1

REPORT INFORMATION
  Report Type: Spontaneous
  Country: GB (occurrence: GB)
  Receive Date: 20210129
  Receipt Date: 20210203
  Transmission Date: 20210419
  Serious: Yes (Life-Threatening, Disabling, Other)
  Sender: FDA-Public Use
  Company Number: GB-AUROBINDO-07-AUR-01045

PATIENT
  Age: 46 Year
  Sex: Male

DRUGS (3)
  1. METFORMIN [Suspect]
     Active Substance: METFORMIN HYDROCHLORIDE
     Indication: TYPE 2 DIABETES MELLITUS
     Dosage: 56 GRAM
     Route: 048
  2. ALCOHOL. [Suspect]
     Active Substance: ALCOHOL
     Indication: PRODUCT USED FOR UNKNOWN INDICATION
     Dosage: UNK UNK,UNK,
     Route: 065
  3. RAMIPRIL. [Suspect]
     Active Substance: RAMIPRIL
     Indication: HYPERTENSION
     Dosage: 35 MILLIGRAM
     Route: 048

REACTIONS (18)
  - Overdose [Recovered/Resolved with Sequelae]
  - Hypotension [Unknown]
  - Apnoea [Unknown]
  - Pallor [Unknown]
  - Lactic acidosis [Recovered/Resolved]
  - Rhabdomyolysis [Recovered/Resolved]
  - Renal impairment [Recovered/Resolved]
  - Compartment syndrome [Recovered/Resolved with Sequelae]
  - Diarrhoea [Recovered/Resolved with Sequelae]
  - Tachypnoea [Unknown]
  - Abdominal pain [Recovered/Resolved]
  - Leg amputation [Unknown]
  - Body temperature decreased [Unknown]
  - Cardio-respiratory arrest [Recovered/Resolved]
  - Vomiting [Recovered/Resolved with Sequelae]
  - Dehydration [Unknown]
  - Coma scale abnormal [Unknown]
  - Seizure [Recovered/Resolved with Sequelae]

NARRATIVE: CASE EVENT DATE: 200702
